FAERS Safety Report 7776646-X (Version None)
Quarter: 2011Q3

REPORT INFORMATION
  Report Type: 
  Country: None (occurrence: None)
  Receive Date: 20110922
  Receipt Date: 20110922
  Transmission Date: 20111222
  Serious: Yes (Life-Threatening, Other)
  Sender: FDA-Public Use
  Company Number: None

PATIENT
  Sex: Female
  Weight: 65.7716 kg

DRUGS (1)
  1. BUPROPION HCL [Suspect]
     Indication: DEPRESSION
     Dosage: 200MG BID ORAL
     Route: 048
     Dates: start: 20050609, end: 20110913

REACTIONS (5)
  - TONGUE BITING [None]
  - ROAD TRAFFIC ACCIDENT [None]
  - PRODUCT SUBSTITUTION ISSUE [None]
  - CONFUSIONAL STATE [None]
  - GRAND MAL CONVULSION [None]
